FAERS Safety Report 12667965 (Version 1)
Quarter: 2016Q3

REPORT INFORMATION
  Report Type: Spontaneous
  Country: US (occurrence: US)
  Receive Date: 20160819
  Receipt Date: 20160819
  Transmission Date: 20161109
  Serious: No
  Sender: FDA-Public Use
  Company Number: US-ACTAVIS-2016-12685

PATIENT
  Sex: Female

DRUGS (1)
  1. FINASTERIDE (ATLLC) [Suspect]
     Active Substance: FINASTERIDE
     Indication: ALOPECIA
     Dosage: UNK, UNKNOWN
     Route: 065

REACTIONS (6)
  - Facial neuralgia [Unknown]
  - Gingival erosion [Unknown]
  - Hot flush [Unknown]
  - Product use issue [Unknown]
  - Feeling cold [Unknown]
  - Tooth erosion [Unknown]
